FAERS Safety Report 7330752-2 (Version None)
Quarter: 2011Q1

REPORT INFORMATION
  Report Type: 
  Country: None (occurrence: None)
  Receive Date: 20110304
  Receipt Date: 20100917
  Transmission Date: 20110831
  Serious: Yes (Hospitalization)
  Sender: FDA-Public Use
  Company Number: US-BAYER-201017045NA

PATIENT
  Sex: Female
  Weight: 175.9 kg

DRUGS (15)
  1. MOTRIN [Concomitant]
     Indication: HEADACHE
  2. METFORMIN [Concomitant]
     Indication: DIABETES MELLITUS
  3. VENLAFAXINE [Concomitant]
  4. YASMIN [Suspect]
     Indication: ACNE
     Dosage: UNK UNK, QD
     Route: 048
     Dates: start: 20051101, end: 20081201
  5. COMBIVENT [Concomitant]
  6. MOTRIN [Concomitant]
     Indication: MUSCLE SPASMS
  7. REGLAN [Concomitant]
  8. PRILOSEC [Concomitant]
  9. OCELLA [Suspect]
     Indication: PRODUCT USED FOR UNKNOWN INDICATION
     Dosage: UNK UNK, QD
     Route: 048
  10. ACETAMINOPHEN [Concomitant]
     Indication: HEADACHE
  11. ACETAMINOPHEN [Concomitant]
     Indication: PYREXIA
  12. YAZ [Suspect]
     Indication: PRODUCT USED FOR UNKNOWN INDICATION
     Dosage: UNK UNK, QD
     Route: 048
  13. LISINOPRIL [Concomitant]
  14. ADVAIR DISKUS 100/50 [Concomitant]
  15. ATIVAN [Concomitant]
     Indication: NERVOUS SYSTEM DISORDER

REACTIONS (2)
  - PULMONARY EMBOLISM [None]
  - ANXIETY [None]
